FAERS Safety Report 5199086-9 (Version None)
Quarter: 2007Q1

REPORT INFORMATION
  Report Type: 
  Country: None (occurrence: None)
  Receive Date: 20070104
  Receipt Date: 20070102
  Transmission Date: 20070707
  Serious: Yes (Hospitalization, Other)
  Sender: FDA-Public Use
  Company Number: BR-SHR-BR-2006-023577

PATIENT
  Age: 31 Year
  Sex: Female

DRUGS (2)
  1. MIRENA [Suspect]
     Indication: ENDOMETRIOSIS
     Dosage: 20 A?G/DAY, CONT
     Route: 015
     Dates: start: 20051222, end: 20060614
  2. FERRO ^ANGELINI^ [Concomitant]
     Dosage: UNK, UNK
     Route: 048

REACTIONS (9)
  - ANAEMIA POSTOPERATIVE [None]
  - ENDOMETRIOSIS [None]
  - GENITAL HAEMORRHAGE [None]
  - GENITAL PAIN [None]
  - HAEMORRHAGIC CYST [None]
  - OVARIAN CYST [None]
  - POST PROCEDURAL HAEMORRHAGE [None]
  - PROCEDURAL PAIN [None]
  - UTERINE ENLARGEMENT [None]
